FAERS Safety Report 9860319 (Version 1)
Quarter: 2014Q1

REPORT INFORMATION
  Report Type: Spontaneous
  Country: PL (occurrence: PL)
  Receive Date: 20140201
  Receipt Date: 20140201
  Transmission Date: 20141002
  Serious: Yes (Other)
  Sender: FDA-Public Use
  Company Number: PHHY2014PL008860

PATIENT
  Age: 20 Year
  Sex: Male
  Weight: 48 kg

DRUGS (2)
  1. METHOTREXATE [Suspect]
     Dosage: 10 MG, QW
     Route: 048
     Dates: start: 20111218
  2. METHOTREXATE [Suspect]
     Dosage: 15 MG, QW
     Route: 048
     Dates: start: 20111218

REACTIONS (4)
  - Disturbance in attention [Recovered/Resolved]
  - Headache [Recovered/Resolved]
  - Abdominal pain [Recovered/Resolved]
  - Nausea [Recovered/Resolved]
